FAERS Safety Report 6624767-7 (Version None)
Quarter: 2010Q1

REPORT INFORMATION
  Report Type: 
  Country: None (occurrence: None)
  Receive Date: 20100310
  Receipt Date: 20100226
  Transmission Date: 20100710
  Serious: Yes (Other)
  Sender: FDA-Public Use
  Company Number: US-ELI_LILLY_AND_COMPANY-US201003000932

PATIENT
  Sex: Female

DRUGS (8)
  1. CYMBALTA [Suspect]
     Indication: DEPRESSION
     Dosage: 30 MG, UNK
     Dates: start: 20050101
  2. CYMBALTA [Suspect]
     Dosage: 60 MG, UNK
  3. CYMBALTA [Suspect]
     Dosage: 30 MG, UNK
     Dates: start: 20100101
  4. SIMVASTATIN [Concomitant]
     Dosage: 10 MG, UNK
  5. LEVOXYL [Concomitant]
     Dosage: 0.75 MG, UNK
  6. OSCAL [Concomitant]
  7. LORAZEPAM [Concomitant]
     Dosage: 1 MG, EACH MORNING
  8. LORAZEPAM [Concomitant]
     Dosage: 2 MG, EACH EVENING

REACTIONS (9)
  - CONFUSIONAL STATE [None]
  - CRYING [None]
  - DEPRESSED MOOD [None]
  - FEELING ABNORMAL [None]
  - HYPOTONIA [None]
  - LOSS OF CONSCIOUSNESS [None]
  - MALAISE [None]
  - MEMORY IMPAIRMENT [None]
  - TRANSIENT ISCHAEMIC ATTACK [None]
